FAERS Safety Report 26040709 (Version 1)
Quarter: 2025Q4

REPORT INFORMATION
  Report Type: Spontaneous
  Country: AE (occurrence: AE)
  Receive Date: 20251113
  Receipt Date: 20251113
  Transmission Date: 20260118
  Serious: Yes (Other)
  Sender: MIRUM PHARMACEUTICALS
  Company Number: AE-MIRUM PHARMACEUTICALS, INC.-AE-MIR-25-00844

PATIENT

DRUGS (2)
  1. MARALIXIBAT [Suspect]
     Active Substance: MARALIXIBAT
     Indication: Product used for unknown indication
     Dosage: 570 MICROGRAM/KILOGRAM, BID
     Route: 065
     Dates: start: 2024, end: 202507
  2. MARALIXIBAT [Suspect]
     Active Substance: MARALIXIBAT
     Dosage: UNK UNK, UNK (RE-START)
     Route: 065
     Dates: start: 2025, end: 2025

REACTIONS (2)
  - Hepatic enzyme increased [Recovered/Resolved]
  - Transplant evaluation [Unknown]
